FAERS Safety Report 21974382 (Version 1)
Quarter: 2023Q1

REPORT INFORMATION
  Report Type: Spontaneous
  Country: US (occurrence: None)
  Receive Date: 20230209
  Receipt Date: 20230209
  Transmission Date: 20230417
  Serious: Yes (Other)
  Sender: FDA-Public Use
  Company Number: 2023A029803

PATIENT
  Age: 456 Month
  Sex: Male
  Weight: 74.8 kg

DRUGS (26)
  1. NEXIUM 24HR [Suspect]
     Active Substance: ESOMEPRAZOLE MAGNESIUM
     Dosage: 2-3 TIMES DAILY
     Route: 048
     Dates: start: 201501, end: 201802
  2. PREVACID 24 HR [Suspect]
     Active Substance: LANSOPRAZOLE
     Dosage: 2-3 TIMES DAILY
     Dates: start: 201501, end: 201802
  3. PANTOPRAZOLE [Suspect]
     Active Substance: PANTOPRAZOLE
     Indication: Gastrooesophageal reflux disease
     Dosage: 40.0MG UNKNOWN
     Dates: start: 201802
  4. PANTOPRAZOLE [Suspect]
     Active Substance: PANTOPRAZOLE
     Indication: Gastrooesophageal reflux disease
     Dosage: 40.0MG UNKNOWN
     Dates: start: 201804, end: 201808
  5. VENLAFAXINE [Concomitant]
     Active Substance: VENLAFAXINE HYDROCHLORIDE
  6. DUEXIS [Concomitant]
     Active Substance: FAMOTIDINE\IBUPROFEN
     Dates: start: 2018
  7. FAMOTIDINE [Concomitant]
     Active Substance: FAMOTIDINE
     Dates: start: 2018
  8. TAGAMET [Concomitant]
     Active Substance: CIMETIDINE
     Dates: start: 2015, end: 2018
  9. ZANTAC [Concomitant]
     Active Substance: RANITIDINE HYDROCHLORIDE
     Dates: start: 2015, end: 2018
  10. OXYCODONE [Concomitant]
     Active Substance: OXYCODONE
  11. HYDROCODONE [Concomitant]
     Active Substance: HYDROCODONE
  12. SUCRALFATE [Concomitant]
     Active Substance: SUCRALFATE
  13. ONDANSETRON [Concomitant]
     Active Substance: ONDANSETRON
  14. TRAMADOL [Concomitant]
     Active Substance: TRAMADOL
  15. CYCLOBENZAPRINE [Concomitant]
     Active Substance: CYCLOBENZAPRINE
  16. GABAPENTIN [Concomitant]
     Active Substance: GABAPENTIN
  17. ACETAMINOPHEN [Concomitant]
     Active Substance: ACETAMINOPHEN
     Dates: start: 2015, end: 2018
  18. BENZONATATE [Concomitant]
     Active Substance: BENZONATATE
     Dates: start: 2015, end: 2018
  19. DONEPEZIL [Concomitant]
     Active Substance: DONEPEZIL
     Dates: start: 2015, end: 2018
  20. BUPIVACAINE [Concomitant]
     Active Substance: BUPIVACAINE
  21. DOCUSATE SODIUM [Concomitant]
     Active Substance: DOCUSATE SODIUM
     Dates: start: 2018
  22. FLAGYL [Concomitant]
     Active Substance: METRONIDAZOLE\METRONIDAZOLE HYDROCHLORIDE
     Dates: start: 2018
  23. SIMETHICONE (DIMETHICONE) [Concomitant]
     Active Substance: DIMETHICONE
     Dates: start: 2018
  24. VICODIN [Concomitant]
     Active Substance: ACETAMINOPHEN\HYDROCODONE BITARTRATE
     Dates: start: 2015, end: 2018
  25. SINGULAIR [Concomitant]
     Active Substance: MONTELUKAST SODIUM
  26. NYSTATIN [Concomitant]
     Active Substance: NYSTATIN

REACTIONS (7)
  - Adenocarcinoma gastric [Not Recovered/Not Resolved]
  - Dyspepsia [Unknown]
  - Gastrooesophageal reflux disease [Unknown]
  - Alopecia [Unknown]
  - Weight decreased [Unknown]
  - Depression [Unknown]
  - Amnesia [Unknown]

NARRATIVE: CASE EVENT DATE: 20170801
